FAERS Safety Report 4928110-0 (Version None)
Quarter: 2006Q1

REPORT INFORMATION
  Report Type: 
  Country: None (occurrence: None)
  Receive Date: 20060223
  Receipt Date: 20060207
  Transmission Date: 20060701
  Serious: Yes (Other)
  Sender: FDA-Public Use
  Company Number: ES-2006-002483

PATIENT
  Sex: 0

DRUGS (1)
  1. BETAFERON                   (INTERFERON BETA -1B) [Suspect]
     Indication: MULTIPLE SCLEROSIS
     Dosage: 8 MIU,EVERY 2D, SUBCUTANEOUS
     Route: 058

REACTIONS (4)
  - ECCHYMOSIS [None]
  - HEADACHE [None]
  - INSOMNIA [None]
  - PHARYNGITIS [None]
